FAERS Safety Report 4616604-7 (Version None)
Quarter: 2005Q1

REPORT INFORMATION
  Report Type: 
  Country: None (occurrence: None)
  Receive Date: 20050318
  Receipt Date: 20050302
  Transmission Date: 20050727
  Serious: Yes (Death, Hospitalization)
  Sender: FDA-Public Use
  Company Number: L04-USA-07403-31

PATIENT
  Age: 29 Year
  Sex: Female

DRUGS (5)
  1. LEXAPRO [Suspect]
  2. DOXEPIN HCL [Suspect]
  3. MIRTAZAPINE [Suspect]
  4. ZIPRASIDONE [Suspect]
  5. CLONAZEPAM [Suspect]

REACTIONS (14)
  - AREFLEXIA [None]
  - BLOOD PH DECREASED [None]
  - BLOOD PRESSURE SYSTOLIC INCREASED [None]
  - CARDIAC ARREST [None]
  - COMA [None]
  - COMPLETED SUICIDE [None]
  - HEART RATE INCREASED [None]
  - INTENTIONAL MISUSE [None]
  - PCO2 DECREASED [None]
  - PUPIL FIXED [None]
  - TORSADE DE POINTES [None]
  - UNRESPONSIVE TO PAIN STIMULI [None]
  - VENTRICULAR EXTRASYSTOLES [None]
  - VENTRICULAR TACHYCARDIA [None]
